FAERS Safety Report 6522717-5 (Version None)
Quarter: 2009Q4

REPORT INFORMATION
  Report Type: 
  Country: None (occurrence: None)
  Receive Date: 20091230
  Receipt Date: 20091228
  Transmission Date: 20100525
  Serious: Yes (Life-Threatening)
  Sender: FDA-Public Use
  Company Number: JP-BRISTOL-MYERS SQUIBB COMPANY-14914402

PATIENT
  Age: 62 Year
  Sex: Male

DRUGS (7)
  1. TAXOL [Suspect]
     Indication: LUNG NEOPLASM MALIGNANT
     Route: 041
     Dates: start: 20091218, end: 20091218
  2. PARAPLATIN [Suspect]
     Indication: LUNG NEOPLASM MALIGNANT
     Route: 041
     Dates: start: 20091218, end: 20091218
  3. DEXAMETHASONE [Concomitant]
     Dosage: DEXAMETHASONE INJ.
     Route: 041
     Dates: start: 20091218, end: 20091218
  4. RANITIDINE HCL [Concomitant]
     Dosage: RANITIDINE HCL INJ
     Route: 041
     Dates: start: 20091218, end: 20091218
  5. GRANISETRON HCL [Concomitant]
     Dosage: GRANISETRON HCL INJ
     Route: 041
     Dates: start: 20091218, end: 20091218
  6. DIPHENHYDRAMINE HCL [Concomitant]
     Route: 048
     Dates: start: 20091218, end: 20091218
  7. OXYCODONE HCL [Concomitant]
     Dosage: OXYCODONE HCL HYDARTE TABS
     Route: 041
     Dates: start: 20091218, end: 20091218

REACTIONS (1)
  - PULMONARY ALVEOLAR HAEMORRHAGE [None]
